FAERS Safety Report 8300645-2 (Version None)
Quarter: 2012Q2

REPORT INFORMATION
  Report Type: 
  Country: None (occurrence: None)
  Receive Date: 20120420
  Receipt Date: 20120413
  Transmission Date: 20120825
  Serious: Yes (Other)
  Sender: FDA-Public Use
  Company Number: PHHY2012ES032630

PATIENT
  Age: 64 Year
  Sex: Female

DRUGS (1)
  1. ZOLEDRONOC ACID [Suspect]
     Indication: BREAST CANCER
     Dosage: 4 MG, QMO
     Route: 042
     Dates: start: 20060101, end: 20080101

REACTIONS (12)
  - ORAL PAIN [None]
  - PURULENT DISCHARGE [None]
  - ORAL DISORDER [None]
  - SPEECH DISORDER [None]
  - ERYTHEMA [None]
  - OSTEONECROSIS OF JAW [None]
  - PRIMARY SEQUESTRUM [None]
  - ORAL DISCOMFORT [None]
  - EXPOSED BONE IN JAW [None]
  - OEDEMA [None]
  - EATING DISORDER [None]
  - TOOTH IMPACTED [None]
